FAERS Safety Report 8958174 (Version 2)
Quarter: 2013Q3

REPORT INFORMATION
  Report Type: Spontaneous
  Country: FR (occurrence: FR)
  Receive Date: 20121211
  Receipt Date: 20130911
  Transmission Date: 20140515
  Serious: Yes (Death, Hospitalization, Other)
  Sender: FDA-Public Use
  Company Number: FR-MERCK-1212FRA000875

PATIENT
  Age: 47 Year
  Sex: Male
  Weight: 56 kg

DRUGS (8)
  1. VICTRELIS [Suspect]
     Indication: HEPATITIS C
     Dosage: 4 DF, TID
     Route: 048
     Dates: start: 20120425, end: 201209
  2. REBETOL [Suspect]
     Indication: HEPATITIS C
     Dosage: 200 MG, BID
     Route: 048
     Dates: start: 20120328, end: 201209
  3. PEGASYS [Suspect]
     Indication: HEPATITIS C
     Dosage: 180 MICROGRAM, QW
     Route: 058
     Dates: start: 20120328, end: 201209
  4. PARIET [Concomitant]
     Indication: GASTROOESOPHAGEAL REFLUX DISEASE
     Dosage: 200 MG, QD
     Route: 048
     Dates: start: 2012
  5. TERCIAN [Concomitant]
     Indication: DEPRESSION
     Dosage: 50 MG, QD
     Route: 048
     Dates: start: 2011
  6. METHADONE HYDROCHLORIDE [Concomitant]
     Dosage: 10 MG, QD
     Route: 048
     Dates: end: 2011
  7. SEROPLEX [Concomitant]
     Indication: DEPRESSION
     Dosage: 20 MG, QD
     Dates: end: 2011
  8. LEXOMIL [Concomitant]
     Indication: ANXIETY
     Dosage: 1 MG, QD
     Dates: start: 2011

REACTIONS (2)
  - Suicide attempt [Fatal]
  - Coma [Fatal]
